FAERS Safety Report 20475526 (Version 2)
Quarter: 2022Q1

REPORT INFORMATION
  Report Type: Spontaneous
  Country: AU (occurrence: AU)
  Receive Date: 20220215
  Receipt Date: 20220217
  Transmission Date: 20220423
  Serious: Yes (Other)
  Sender: FDA-Public Use
  Company Number: AU-COLLEGIUM PHARMACEUTICAL, INC.-2022CGM00108

PATIENT
  Age: 64 Year
  Sex: Male

DRUGS (2)
  1. TAPENTADOL [Suspect]
     Active Substance: TAPENTADOL
     Indication: Product used for unknown indication
     Dosage: 50 MG, 2X/DAY
  2. UNSPECIFIED INGREDIENT [Concomitant]
     Active Substance: UNSPECIFIED INGREDIENT

REACTIONS (17)
  - Polyuria [Unknown]
  - Haematemesis [Unknown]
  - Abdominal pain [Unknown]
  - Back pain [Unknown]
  - Dizziness [Unknown]
  - Headache [Unknown]
  - Insomnia [Unknown]
  - Emotional distress [Unknown]
  - Hyperhidrosis [Unknown]
  - Dry mouth [Unknown]
  - Product dose omission issue [Unknown]
  - Product tampering [Unknown]
  - Product label issue [Unknown]
  - Constipation [Unknown]
  - Fatigue [Unknown]
  - Contraindicated product prescribed [Unknown]
  - Anxiety [Unknown]
